FAERS Safety Report 24585814 (Version 1)
Quarter: 2024Q4

REPORT INFORMATION
  Report Type: Spontaneous
  Country: US (occurrence: None)
  Receive Date: 20241106
  Receipt Date: 20241106
  Transmission Date: 20250115
  Serious: No
  Sender: Public
  Company Number: None

PATIENT
  Sex: Female

DRUGS (1)
  1. SKYRIZI [Suspect]
     Active Substance: RISANKIZUMAB-RZAA
     Indication: Crohn^s disease
     Dosage: OTHER FREQUENCY : EVERY8WEEKS;?
     Route: 042
     Dates: start: 202406

REACTIONS (4)
  - Defaecation urgency [None]
  - Fatigue [None]
  - Condition aggravated [None]
  - Tooth infection [None]
